FAERS Safety Report 6608338-4 (Version None)
Quarter: 2010Q1

REPORT INFORMATION
  Report Type: 
  Country: None (occurrence: None)
  Receive Date: 20100301
  Receipt Date: 20100222
  Transmission Date: 20100710
  Serious: Yes (Life-Threatening, Hospitalization)
  Sender: FDA-Public Use
  Company Number: FR-ELI_LILLY_AND_COMPANY-FR201002005857

PATIENT
  Sex: Female
  Weight: 111 kg

DRUGS (13)
  1. BYETTA [Suspect]
     Indication: TYPE 2 DIABETES MELLITUS
     Dosage: 5 UG, 2/D
     Route: 058
     Dates: start: 20081201
  2. BYETTA [Suspect]
     Dosage: 10 UG, 2/D
     Route: 058
  3. BYETTA [Suspect]
     Dosage: 5 UG, 2/D
     Route: 058
     Dates: end: 20090914
  4. DAONIL [Concomitant]
     Dosage: 5 MG, 3/D
  5. RENITEC [Concomitant]
     Dosage: 20 MG, DAILY (1/D)
  6. HEXAQUINE [Concomitant]
     Dosage: 1 D/F, DAILY (1/D)
  7. DONORMYL [Concomitant]
     Dosage: UNK, UNKNOWN
  8. GLUCOPHAGE [Concomitant]
     Dosage: 1000 MG, 3/D
  9. GAVISCON /GFR/ [Concomitant]
     Dosage: UNK, 3/D
  10. INIPOMP [Concomitant]
     Dosage: 20 MG, DAILY (1/D)
  11. ESCITALOPRAM [Concomitant]
     Dosage: UNK, UNKNOWN
  12. ATARAX [Concomitant]
     Dosage: 0.5 D/F, DAILY (1/D)
  13. LANTUS [Concomitant]
     Dosage: 12 U, UNK

REACTIONS (7)
  - ABDOMINAL PAIN [None]
  - ASTHENIA [None]
  - DIARRHOEA [None]
  - NAUSEA [None]
  - PANCREATIC CARCINOMA [None]
  - VOMITING [None]
  - WEIGHT DECREASED [None]
